FAERS Safety Report 9813102 (Version 10)
Quarter: 2017Q1

REPORT INFORMATION
  Report Type: Report from Study
  Country: US (occurrence: US)
  Receive Date: 20140113
  Receipt Date: 20170327
  Transmission Date: 20170429
  Serious: Yes (Other)
  Sender: FDA-Public Use
  Company Number: US-SA-2014SA002086

PATIENT
  Age: 55 Year
  Sex: Female

DRUGS (3)
  1. NYSTATIN. [Concomitant]
     Active Substance: NYSTATIN
  2. ADDERALL [Concomitant]
     Active Substance: AMPHETAMINE ASPARTATE\AMPHETAMINE SULFATE\DEXTROAMPHETAMINE SACCHARATE\DEXTROAMPHETAMINE SULFATE
  3. AUBAGIO [Suspect]
     Active Substance: TERIFLUNOMIDE
     Indication: MULTIPLE SCLEROSIS
     Route: 048
     Dates: start: 20130506

REACTIONS (23)
  - Dyspnoea [Unknown]
  - Condition aggravated [Unknown]
  - Headache [Unknown]
  - Epistaxis [Unknown]
  - Pneumonia [Unknown]
  - Foot fracture [Unknown]
  - Asthma [Recovering/Resolving]
  - Eye disorder [Unknown]
  - Fall [Unknown]
  - Upper respiratory tract infection [Unknown]
  - Sinusitis [Recovering/Resolving]
  - Hypoaesthesia [Unknown]
  - Asthenia [Unknown]
  - Contusion [Unknown]
  - Bronchitis [Unknown]
  - Pain [Unknown]
  - Unevaluable event [Unknown]
  - Chest pain [Unknown]
  - Central nervous system lesion [Unknown]
  - Hypertension [Unknown]
  - Pain in extremity [Unknown]
  - Feeling abnormal [Unknown]
  - Memory impairment [Unknown]

NARRATIVE: CASE EVENT DATE: 201305
